FAERS Safety Report 7518162-6 (Version None)
Quarter: 2011Q2

REPORT INFORMATION
  Report Type: 
  Country: None (occurrence: None)
  Receive Date: 20110523
  Receipt Date: 20110509
  Transmission Date: 20111010
  Serious: Yes (Hospitalization, Disabling)
  Sender: FDA-Public Use
  Company Number: 2011MA005600

PATIENT
  Age: 83 Year
  Sex: Female

DRUGS (2)
  1. BUPICAINE [Concomitant]
  2. BETAMETHASONE DIPROPIONATE [Suspect]
     Indication: INTERVERTEBRAL DISC DEGENERATION
     Dosage: 6 MG, ED

REACTIONS (7)
  - SPINAL CORD INJURY [None]
  - NEUROGENIC BOWEL [None]
  - PARAPLEGIA [None]
  - NEUROGENIC BLADDER [None]
  - ACTIVITIES OF DAILY LIVING IMPAIRED [None]
  - WALKING AID USER [None]
  - SPINAL CORD INFARCTION [None]
